FAERS Safety Report 9037829 (Version 2)
Quarter: 2013Q1

REPORT INFORMATION
  Report Type: Spontaneous
  Country: US (occurrence: US)
  Receive Date: 20130129
  Receipt Date: 20130222
  Transmission Date: 20140127
  Serious: Yes (Other)
  Sender: FDA-Public Use
  Company Number: US-BRISTOL-MYERS SQUIBB COMPANY-17312463

PATIENT
  Age: 54 Year
  Sex: Female

DRUGS (6)
  1. ABATACEPT SUBQ INJECTION 125MG/ML [Suspect]
     Indication: RHEUMATOID ARTHRITIS
     Dosage: LAST DOSE: 17JAN2013
     Route: 058
     Dates: start: 20121015, end: 20130118
  2. METHOTREXATE [Concomitant]
     Dosage: 1 DF: 15 UNITS NOS
  3. PREDNISONE [Concomitant]
     Dosage: 1 DF: 5 UNITS NOS
  4. FOLIC ACID [Concomitant]
  5. VOLTAREN [Concomitant]
     Dosage: GEL
  6. CELEBREX [Concomitant]
     Dosage: 1 DF: 200 UNITS NOS

REACTIONS (2)
  - Joint swelling [Recovered/Resolved]
  - Inflammation [Recovered/Resolved]
